FAERS Safety Report 5025336-5 (Version None)
Quarter: 2006Q2

REPORT INFORMATION
  Report Type: 
  Country: None (occurrence: None)
  Receive Date: 20060426
  Receipt Date: 20060323
  Transmission Date: 20061013
  Serious: Yes (Other)
  Sender: FDA-Public Use
  Company Number: 2006008808

PATIENT
  Sex: Female

DRUGS (1)
  1. LYRICA [Suspect]
     Indication: ILL-DEFINED DISORDER
     Dosage: 200 MG (100 MG 2 IN 1 D) ORAL
     Route: 048

REACTIONS (3)
  - ECZEMA [None]
  - PRURITUS [None]
  - RASH [None]
